FAERS Safety Report 8825756 (Version 4)
Quarter: 2014Q2

REPORT INFORMATION
  Report Type: Spontaneous
  Country: US (occurrence: US)
  Receive Date: 20121004
  Receipt Date: 20140526
  Transmission Date: 20141212
  Serious: No
  Sender: FDA-Public Use
  Company Number: US-ASTRAZENECA-2012SE73990

PATIENT
  Age: 63 Year
  Sex: Female
  Weight: 73 kg

DRUGS (14)
  1. NEXIUM [Suspect]
     Indication: GASTROOESOPHAGEAL REFLUX DISEASE
     Route: 048
     Dates: start: 2004
  2. NEXIUM [Suspect]
     Indication: DYSPEPSIA
     Route: 048
     Dates: start: 2004
  3. NEXIUM [Suspect]
     Indication: GASTROOESOPHAGEAL REFLUX DISEASE
     Route: 048
     Dates: start: 2004
  4. NEXIUM [Suspect]
     Indication: GASTROOESOPHAGEAL REFLUX DISEASE
     Route: 048
     Dates: start: 2004
  5. NEXIUM [Suspect]
     Indication: DYSPEPSIA
     Route: 048
     Dates: start: 2004
  6. NEXIUM [Suspect]
     Indication: GASTROOESOPHAGEAL REFLUX DISEASE
     Route: 048
     Dates: start: 2004
  7. NEXIUM [Suspect]
     Indication: GASTROOESOPHAGEAL REFLUX DISEASE
     Dosage: TAKING NEXIUM EVERY OTHER DAY
     Route: 048
  8. NEXIUM [Suspect]
     Indication: DYSPEPSIA
     Dosage: TAKING NEXIUM EVERY OTHER DAY
     Route: 048
  9. NEXIUM [Suspect]
     Indication: GASTROOESOPHAGEAL REFLUX DISEASE
     Dosage: TAKING NEXIUM EVERY OTHER DAY
     Route: 048
  10. PRILOSEC [Suspect]
     Indication: GASTROOESOPHAGEAL REFLUX DISEASE
     Route: 048
  11. PRILOSEC [Suspect]
     Indication: DYSPEPSIA
     Route: 048
  12. PRILOSEC OTC [Suspect]
     Indication: GASTROOESOPHAGEAL REFLUX DISEASE
     Route: 048
  13. PRILOSEC OTC [Suspect]
     Indication: DYSPEPSIA
     Route: 048
  14. TUMS [Concomitant]

REACTIONS (12)
  - Pain [Unknown]
  - Gastrooesophageal reflux disease [Unknown]
  - Dyspepsia [Unknown]
  - Eating disorder [Unknown]
  - Abdominal pain upper [Unknown]
  - Weight decreased [Unknown]
  - Flatulence [Unknown]
  - Malaise [Unknown]
  - Memory impairment [Unknown]
  - Intentional product misuse [Unknown]
  - Drug dose omission [Unknown]
  - Drug ineffective [Unknown]
